FAERS Safety Report 5099061-9 (Version None)
Quarter: 2006Q3

REPORT INFORMATION
  Report Type: 
  Country: None (occurrence: None)
  Receive Date: 20060731
  Receipt Date: 20060201
  Transmission Date: 20061208
  Serious: Yes (Hospitalization)
  Sender: FDA-Public Use
  Company Number: 221732

PATIENT
  Age: 74 Year
  Sex: Female
  Weight: 60.8 kg

DRUGS (1)
  1. RITUXAN [Suspect]
     Indication: LYMPHOMA
     Dosage: 600 MG, Q3W, INTRAVENOUS
     Route: 042
     Dates: start: 20050912, end: 20051019

REACTIONS (3)
  - DYSPNOEA [None]
  - PNEUMONITIS [None]
  - PYREXIA [None]
